FAERS Safety Report 14123827 (Version 2)
Quarter: 2017Q4

REPORT INFORMATION
  Report Type: Report from Study
  Country: JP (occurrence: JP)
  Receive Date: 20171025
  Receipt Date: 20171101
  Transmission Date: 20180321
  Serious: Yes (Other)
  Sender: FDA-Public Use
  Company Number: JP-MYLANLABS-2017M1066678

PATIENT
  Age: 61 Year
  Sex: Female

DRUGS (1)
  1. TRIAMCINOLONE [Suspect]
     Active Substance: TRIAMCINOLONE
     Indication: MALIGNANT ASCITES
     Dosage: 400 MG (40 ML)
     Route: 050

REACTIONS (1)
  - Intestinal perforation [Unknown]
